FAERS Safety Report 6933836-3 (Version None)
Quarter: 2010Q3

REPORT INFORMATION
  Report Type: 
  Country: None (occurrence: None)
  Receive Date: 20100820
  Receipt Date: 20100816
  Transmission Date: 20110219
  Serious: Yes (Hospitalization)
  Sender: FDA-Public Use
  Company Number: US-ELI_LILLY_AND_COMPANY-US201007005678

PATIENT
  Sex: Female
  Weight: 70.3 kg

DRUGS (7)
  1. PRASUGREL HYDROCHLORIDE [Suspect]
     Indication: ACUTE CORONARY SYNDROME
     Dosage: 10 MG, DAILY (1/D)
     Dates: start: 20100424, end: 20100720
  2. PRASUGREL HYDROCHLORIDE [Suspect]
     Dosage: 10 MG, DAILY (1/D)
     Dates: start: 20100721
  3. ASPIRIN [Concomitant]
     Indication: ANTIPLATELET THERAPY
     Dosage: 325 UNK, DAILY (1/D)
     Route: 048
     Dates: start: 20100424
  4. TOPROL-XL [Concomitant]
     Indication: HYPERTENSION
     Dosage: 125 MG, DAILY (1/D)
     Route: 048
  5. TRIAMTERENE [Concomitant]
     Indication: HYPERTENSION
     Dosage: 1 MG, DAILY (1/D)
     Route: 048
  6. ZETIA [Concomitant]
     Indication: BLOOD CHOLESTEROL INCREASED
     Dosage: 1 MG, DAILY (1/D)
     Route: 048
  7. ASPIRIN [Concomitant]
     Dosage: 81 MG, DAILY (1/D)

REACTIONS (1)
  - GASTRIC ULCER [None]
